FAERS Safety Report 26177669 (Version 1)
Quarter: 2025Q4

REPORT INFORMATION
  Report Type: Spontaneous
  Country: CN (occurrence: CN)
  Receive Date: 20251219
  Receipt Date: 20251219
  Transmission Date: 20260119
  Serious: Yes (Hospitalization)
  Sender: BIO-THERA SOLUTIONS, LTD
  Company Number: CN-BAT-2025BAT001334

PATIENT
  Age: 47 Year
  Sex: Female
  Weight: 60.00 kg

DRUGS (2)
  1. BEVACIZUMAB [Suspect]
     Active Substance: BEVACIZUMAB
     Indication: Mucinous cystadenocarcinoma ovary
     Dosage: 800.00 MG, Q3W
     Route: 041
     Dates: start: 20251017, end: 20251118
  2. KETAMINE [Suspect]
     Active Substance: KETAMINE
     Indication: Mucinous cystadenocarcinoma ovary
     Dosage: 625.00 MG, Q3W
     Route: 041
     Dates: start: 20251017, end: 20251118

REACTIONS (1)
  - Drug-induced liver injury [Unknown]

NARRATIVE: CASE EVENT DATE: 20251117
